FAERS Safety Report 25897640 (Version 1)
Quarter: 2025Q4

REPORT INFORMATION
  Report Type: Spontaneous
  Country: US (occurrence: None)
  Receive Date: 20251007
  Receipt Date: 20251007
  Transmission Date: 20260117
  Serious: Yes (Hospitalization)
  Sender: FDA-CTU
  Company Number: None

PATIENT
  Sex: Female

DRUGS (1)
  1. OCTREOTIDE [Suspect]
     Active Substance: OCTREOTIDE
     Indication: Breast cancer female
     Dosage: OTHER STRENGTH : 200MCG/ML;?FREQUENCY : 3 TIMES A DAY;?
     Route: 058
     Dates: start: 20241023

REACTIONS (1)
  - Transfusion [None]
